FAERS Safety Report 6759030-7 (Version None)
Quarter: 2010Q2

REPORT INFORMATION
  Report Type: 
  Country: None (occurrence: None)
  Receive Date: 20100607
  Receipt Date: 20100528
  Transmission Date: 20101027
  Serious: Yes (Hospitalization)
  Sender: FDA-Public Use
  Company Number: FR-JNJFOC-20090808788

PATIENT
  Age: 47 Year
  Sex: Female

DRUGS (2)
  1. REMICADE [Suspect]
     Indication: ERYTHRODERMIC PSORIASIS
     Dosage: 1ST INFUSION
     Route: 042
  2. SORIATANE [Concomitant]
     Indication: PSORIASIS

REACTIONS (3)
  - ACUTE POLYNEUROPATHY [None]
  - CARPAL TUNNEL SYNDROME [None]
  - INFUSION RELATED REACTION [None]
